FAERS Safety Report 24336471 (Version 1)
Quarter: 2024Q3

REPORT INFORMATION
  Report Type: Spontaneous
  Country: CN (occurrence: CN)
  Receive Date: 20240919
  Receipt Date: 20240919
  Transmission Date: 20241017
  Serious: No
  Sender: ROCHE
  Company Number: CN-ROCHE-3573315

PATIENT
  Age: 49 Year
  Sex: Female

DRUGS (3)
  1. TAMIFLU [Suspect]
     Active Substance: OSELTAMIVIR PHOSPHATE
     Indication: Upper respiratory tract infection
     Route: 048
     Dates: start: 20240508, end: 20240511
  2. IBUPROFEN [Suspect]
     Active Substance: IBUPROFEN
     Indication: Pyrexia
     Route: 048
     Dates: start: 20240508, end: 20240511
  3. HERBALS [Suspect]
     Active Substance: HERBALS
     Indication: Nasopharyngitis
     Route: 048
     Dates: start: 20240508, end: 20240511

REACTIONS (6)
  - Transaminases increased [Recovered/Resolved]
  - Blood bilirubin increased [Recovering/Resolving]
  - Electrolyte imbalance [Unknown]
  - Hypokalaemia [Unknown]
  - Hypochloraemia [Unknown]
  - Hyponatraemia [Unknown]

NARRATIVE: CASE EVENT DATE: 20240512
